FAERS Safety Report 12905083 (Version 1)
Quarter: 2016Q4

REPORT INFORMATION
  Report Type: Spontaneous
  Country: JP (occurrence: JP)
  Receive Date: 20161102
  Receipt Date: 20161102
  Transmission Date: 20170207
  Serious: Yes (Other)
  Sender: FDA-Public Use
  Company Number: JP-MYLANLABS-2016M1046268

PATIENT

DRUGS (3)
  1. AMRUBICINUM [Suspect]
     Active Substance: AMRUBICIN
     Indication: SMALL CELL LUNG CANCER
     Dosage: 35 MG/M2
     Route: 065
  2. CISPLATIN. [Suspect]
     Active Substance: CISPLATIN
     Indication: SMALL CELL LUNG CANCER
     Route: 065
  3. IRINOTECAN [Suspect]
     Active Substance: IRINOTECAN
     Indication: SMALL CELL LUNG CANCER
     Route: 065

REACTIONS (1)
  - Interstitial lung disease [Recovering/Resolving]
